FAERS Safety Report 19707904 (Version 1)
Quarter: 2021Q3

REPORT INFORMATION
  Report Type: Spontaneous
  Country: CN (occurrence: CN)
  Receive Date: 20210816
  Receipt Date: 20210816
  Transmission Date: 20211014
  Serious: Yes (Hospitalization)
  Sender: FDA-Public Use
  Company Number: NVSC2021CN181315

PATIENT
  Age: 59 Year
  Sex: Female

DRUGS (1)
  1. BRINZOLAMIDE [Suspect]
     Active Substance: BRINZOLAMIDE
     Indication: OCULAR HYPERTENSION
     Dosage: 0.200 ML, BID (0.200000 ML BID)
     Route: 047
     Dates: start: 20210716, end: 20210719

REACTIONS (2)
  - Paraesthesia [Recovering/Resolving]
  - Erythema [Recovering/Resolving]

NARRATIVE: CASE EVENT DATE: 20210719
